FAERS Safety Report 21150629 (Version 1)
Quarter: 2022Q3

REPORT INFORMATION
  Report Type: Spontaneous
  Country: US (occurrence: US)
  Receive Date: 20220729
  Receipt Date: 20220729
  Transmission Date: 20221026
  Serious: Yes (Hospitalization)
  Sender: FDA-Public Use
  Company Number: US-BIOGEN-2022BI01142606

PATIENT
  Age: 4 Year

DRUGS (1)
  1. SPINRAZA [Suspect]
     Active Substance: NUSINERSEN
     Indication: Spinal muscular atrophy
     Route: 050
     Dates: start: 20190830

REACTIONS (3)
  - Blood glucose decreased [Unknown]
  - Vomiting [Unknown]
  - Poor venous access [Unknown]

NARRATIVE: CASE EVENT DATE: 20220720
